FAERS Safety Report 25363286 (Version 1)
Quarter: 2025Q2

REPORT INFORMATION
  Report Type: Spontaneous
  Country: FR (occurrence: FR)
  Receive Date: 20250527
  Receipt Date: 20250527
  Transmission Date: 20250717
  Serious: Yes (Life-Threatening)
  Sender: MYLAN
  Company Number: None

PATIENT
  Age: 58 Year
  Sex: Male
  Weight: 61 kg

DRUGS (24)
  1. DEXAMETHASONE [Suspect]
     Active Substance: DEXAMETHASONE
     Indication: Surgery
     Dates: start: 20250416, end: 20250416
  2. DEXAMETHASONE [Suspect]
     Active Substance: DEXAMETHASONE
     Route: 042
     Dates: start: 20250416, end: 20250416
  3. DEXAMETHASONE [Suspect]
     Active Substance: DEXAMETHASONE
     Route: 042
     Dates: start: 20250416, end: 20250416
  4. DEXAMETHASONE [Suspect]
     Active Substance: DEXAMETHASONE
     Dates: start: 20250416, end: 20250416
  5. SUFENTANIL [Suspect]
     Active Substance: SUFENTANIL
     Indication: Surgery
     Dates: start: 20250416, end: 20250416
  6. SUFENTANIL [Suspect]
     Active Substance: SUFENTANIL
     Route: 042
     Dates: start: 20250416, end: 20250416
  7. SUFENTANIL [Suspect]
     Active Substance: SUFENTANIL
     Route: 042
     Dates: start: 20250416, end: 20250416
  8. SUFENTANIL [Suspect]
     Active Substance: SUFENTANIL
     Dates: start: 20250416, end: 20250416
  9. PROPOFOL [Suspect]
     Active Substance: PROPOFOL
     Indication: Surgery
     Dates: start: 20250416, end: 20250416
  10. PROPOFOL [Suspect]
     Active Substance: PROPOFOL
     Route: 042
     Dates: start: 20250416, end: 20250416
  11. PROPOFOL [Suspect]
     Active Substance: PROPOFOL
     Route: 042
     Dates: start: 20250416, end: 20250416
  12. PROPOFOL [Suspect]
     Active Substance: PROPOFOL
     Dates: start: 20250416, end: 20250416
  13. ATRACURIUM [Suspect]
     Active Substance: ATRACURIUM
     Indication: Surgery
     Dates: start: 20250416, end: 20250416
  14. ATRACURIUM [Suspect]
     Active Substance: ATRACURIUM
     Route: 042
     Dates: start: 20250416, end: 20250416
  15. ATRACURIUM [Suspect]
     Active Substance: ATRACURIUM
     Route: 042
     Dates: start: 20250416, end: 20250416
  16. ATRACURIUM [Suspect]
     Active Substance: ATRACURIUM
     Dates: start: 20250416, end: 20250416
  17. KETAMINE [Suspect]
     Active Substance: KETAMINE
     Indication: Surgery
     Dates: start: 20250416, end: 20250416
  18. KETAMINE [Suspect]
     Active Substance: KETAMINE
     Route: 042
     Dates: start: 20250416, end: 20250416
  19. KETAMINE [Suspect]
     Active Substance: KETAMINE
     Route: 042
     Dates: start: 20250416, end: 20250416
  20. KETAMINE [Suspect]
     Active Substance: KETAMINE
     Dates: start: 20250416, end: 20250416
  21. AUGMENTIN [Suspect]
     Active Substance: AMOXICILLIN\CLAVULANATE POTASSIUM
     Indication: Surgery
     Dates: start: 20250416, end: 20250416
  22. AUGMENTIN [Suspect]
     Active Substance: AMOXICILLIN\CLAVULANATE POTASSIUM
     Route: 042
     Dates: start: 20250416, end: 20250416
  23. AUGMENTIN [Suspect]
     Active Substance: AMOXICILLIN\CLAVULANATE POTASSIUM
     Route: 042
     Dates: start: 20250416, end: 20250416
  24. AUGMENTIN [Suspect]
     Active Substance: AMOXICILLIN\CLAVULANATE POTASSIUM
     Dates: start: 20250416, end: 20250416

REACTIONS (3)
  - Anaphylactic reaction [Recovered/Resolved]
  - Hypotension [Recovered/Resolved]
  - Bronchospasm [Recovered/Resolved]

NARRATIVE: CASE EVENT DATE: 20250416
